FAERS Safety Report 17977228 (Version 2)
Quarter: 2020Q3

REPORT INFORMATION
  Report Type: Report from Study
  Country: None (occurrence: AU)
  Receive Date: 20200702
  Receipt Date: 20200704
  Transmission Date: 20201103
  Serious: Yes (Hospitalization)
  Sender: FDA-Public Use
  Company Number: AU-ABBVIE-20K-008-3469149-00

PATIENT
  Age: 67 Year
  Sex: Male

DRUGS (1)
  1. DUODOPA [Suspect]
     Active Substance: CARBIDOPA\LEVODOPA
     Indication: PARKINSON^S DISEASE
     Dosage: 24 HOUR
     Route: 050
     Dates: start: 20171214, end: 20200702

REACTIONS (3)
  - Incorrect route of product administration [Unknown]
  - Enteral nutrition [Unknown]
  - Device dislocation [Unknown]

NARRATIVE: CASE EVENT DATE: 2020
